FAERS Safety Report 6049490-1 (Version None)
Quarter: 2009Q1

REPORT INFORMATION
  Report Type: 
  Country: None (occurrence: None)
  Receive Date: 20090121
  Receipt Date: 20090121
  Transmission Date: 20090719
  Serious: No
  Sender: FDA-Public Use
  Company Number: TPG2008A01437

PATIENT
  Age: 73 Year
  Sex: Male

DRUGS (1)
  1. ACTOPLUS MET [Suspect]
     Indication: DIABETES MELLITUS
     Dosage: PIOGLITAZONE 30 MG / METFORMIN 1700
     Route: 048
     Dates: start: 20081107, end: 20081111

REACTIONS (1)
  - ANGINA PECTORIS [None]
